FAERS Safety Report 9416578 (Version 3)
Quarter: 2015Q2

REPORT INFORMATION
  Report Type: Spontaneous
  Country: US (occurrence: None)
  Receive Date: 20130719
  Receipt Date: 20150528
  Transmission Date: 20150821
  Serious: Yes (Hospitalization)
  Sender: FDA-Public Use
  Company Number: 13-07-004

PATIENT
  Age: 67 Year
  Sex: Female
  Weight: 53.52 kg

DRUGS (13)
  1. ROPINIROLE. [Suspect]
     Active Substance: ROPINIROLE
     Indication: RESTLESS LEGS SYNDROME
     Route: 048
  2. ADVAIR HFA [Concomitant]
     Active Substance: FLUTICASONE PROPIONATE\SALMETEROL XINAFOATE
  3. IPRATROPIUM BROMIDE AND ALBUTEROL SULFATE [Concomitant]
     Active Substance: ALBUTEROL SULFATE\IPRATROPIUM BROMIDE
  4. CELEXA 5 MG [Concomitant]
  5. LASIX [Concomitant]
     Active Substance: FUROSEMIDE
  6. WELLBUTRIN [Concomitant]
     Active Substance: BUPROPION HYDROCHLORIDE
  7. MUINEX [Concomitant]
  8. PREDNISONE. [Concomitant]
     Active Substance: PREDNISONE
  9. SPIRIVA [Concomitant]
     Active Substance: TIOTROPIUM BROMIDE MONOHYDRATE
  10. BROMIDE ALBUTEROL SULFATE NEBULIZER [Concomitant]
  11. LISINOPRIL. [Concomitant]
     Active Substance: LISINOPRIL
  12. COLCRYS [Concomitant]
     Active Substance: COLCHICINE
  13. OPEPRAZOLE [Concomitant]

REACTIONS (4)
  - Gait disturbance [None]
  - Road traffic accident [None]
  - Dyspnoea [None]
  - Somnolence [None]

NARRATIVE: CASE EVENT DATE: 20130613
